FAERS Safety Report 5801523-0 (Version None)
Quarter: 2008Q3

REPORT INFORMATION
  Report Type: 
  Country: None (occurrence: None)
  Receive Date: 20080703
  Receipt Date: 20080703
  Transmission Date: 20090109
  Serious: Yes (Life-Threatening)
  Sender: FDA-Public Use
  Company Number: None

PATIENT
  Age: 35 Year
  Sex: Male
  Weight: 90.7194 kg

DRUGS (1)
  1. LEVAQUIN [Suspect]

REACTIONS (5)
  - ABASIA [None]
  - ARTHRALGIA [None]
  - NECK PAIN [None]
  - PAIN IN EXTREMITY [None]
  - UNEMPLOYMENT [None]
